FAERS Safety Report 9818265 (Version 1)
Quarter: 2013Q4

REPORT INFORMATION
  Report Type: Spontaneous
  Country: US (occurrence: None)
  Receive Date: 20131223
  Receipt Date: 20131223
  Transmission Date: 20140711
  Serious: Yes (Other)
  Sender: FDA-Public Use
  Company Number: 221861

PATIENT
  Age: 49 Year
  Sex: Female

DRUGS (1)
  1. PICATO GEL [Suspect]
     Dosage: 1 TUBE DAILY (DAILY), DERMAL
     Dates: start: 20130510

REACTIONS (2)
  - Application site erythema [None]
  - Application site vesicles [None]
